FAERS Safety Report 7203509-0 (Version None)
Quarter: 2010Q4

REPORT INFORMATION
  Report Type: 
  Country: None (occurrence: None)
  Receive Date: 20101230
  Receipt Date: 20101224
  Transmission Date: 20110411
  Serious: Yes (Hospitalization)
  Sender: FDA-Public Use
  Company Number: JP-BRISTOL-MYERS SQUIBB COMPANY-15447790

PATIENT
  Age: 74 Year
  Sex: Female
  Weight: 40 kg

DRUGS (6)
  1. ORENCIA [Suspect]
     Dosage: 2ND ADMINISTRATION,THERAPY DATES 26NOV10
     Route: 041
     Dates: start: 20101116
  2. MEDROL [Concomitant]
  3. PRAVASTATIN SODIUM [Concomitant]
  4. FOSAMAC [Concomitant]
  5. FAMOTIDINE [Concomitant]
  6. WARFARIN POTASSIUM [Concomitant]

REACTIONS (1)
  - CEREBRAL INFARCTION [None]
